FAERS Safety Report 12549770 (Version 1)
Quarter: 2016Q3

REPORT INFORMATION
  Report Type: Spontaneous
  Country: CZ (occurrence: CZ)
  Receive Date: 20160712
  Receipt Date: 20160712
  Transmission Date: 20161109
  Serious: Yes (Other)
  Sender: FDA-Public Use
  Company Number: CZ-HQ SPECIALTY-CZ-2016INT000462

PATIENT
  Sex: Female

DRUGS (8)
  1. CARBOPLATIN. [Suspect]
     Active Substance: CARBOPLATIN
     Dosage: AUC 6, EVERY 3 WEEKS (9 CYCLES)
     Dates: end: 200603
  2. PACLITAXEL. [Suspect]
     Active Substance: PACLITAXEL
     Dosage: 175 MG/M2, EVERY 3 WEEKS (7 CYCLES)
     Dates: end: 200710
  3. CARBOPLATIN. [Suspect]
     Active Substance: CARBOPLATIN
     Dosage: AUC 6, EVERY 3 WEEKS, (7 CYCLES)
     Dates: end: 200710
  4. CARBOPLATIN. [Suspect]
     Active Substance: CARBOPLATIN
     Dosage: AUC 6, EVERY 3 WEEKS, (7 CYCLES)
     Dates: end: 200702
  5. PACLITAXEL. [Suspect]
     Active Substance: PACLITAXEL
     Dosage: 175 MG/M2, EVERY 3 WEEKS, (7 CYCLES)
     Dates: end: 200702
  6. PACLITAXEL. [Suspect]
     Active Substance: PACLITAXEL
     Indication: OVARIAN CANCER
     Dosage: 175 MG/M2, EVERY 3 WEEKS (8 CYCLES)
  7. PACLITAXEL. [Suspect]
     Active Substance: PACLITAXEL
     Dosage: 175 MG/M2, EVERY 3 WEEKS, (9 CYCLES)
     Dates: end: 200603
  8. CARBOPLATIN. [Suspect]
     Active Substance: CARBOPLATIN
     Indication: OVARIAN CANCER
     Dosage: AUC 6, EVERY 3 WEEKS (8 CYCLES)

REACTIONS (7)
  - Pancytopenia [Unknown]
  - Dizziness [Unknown]
  - Dyspnoea [Unknown]
  - Asthenia [Unknown]
  - Epistaxis [Unknown]
  - Fatigue [Unknown]
  - Acute myeloid leukaemia [Unknown]

NARRATIVE: CASE EVENT DATE: 200802
